FAERS Safety Report 24966898 (Version 1)
Quarter: 2025Q1

REPORT INFORMATION
  Report Type: Report from Study
  Country: GB (occurrence: GB)
  Receive Date: 20250213
  Receipt Date: 20250213
  Transmission Date: 20250409
  Serious: Yes (Other)
  Sender: PFIZER
  Company Number: GB-PFIZER INC-202500027638

PATIENT
  Weight: 6.3 kg

DRUGS (3)
  1. CYTARABINE [Suspect]
     Active Substance: CYTARABINE
     Indication: Acute myeloid leukaemia
     Route: 042
     Dates: start: 20220111, end: 20220115
  2. IDARUBICIN HYDROCHLORIDE [Suspect]
     Active Substance: IDARUBICIN HYDROCHLORIDE
     Indication: Acute myeloid leukaemia
     Route: 042
     Dates: start: 20220113, end: 20220115
  3. FLUDARABINE [Suspect]
     Active Substance: FLUDARABINE PHOSPHATE
     Indication: Acute myeloid leukaemia
     Route: 042
     Dates: start: 20220111, end: 20220115

REACTIONS (1)
  - Dehydration [Recovered/Resolved]

NARRATIVE: CASE EVENT DATE: 20220114
